FAERS Safety Report 8470853-9 (Version None)
Quarter: 2012Q2

REPORT INFORMATION
  Report Type: 
  Country: None (occurrence: None)
  Receive Date: 20120620
  Receipt Date: 20120613
  Transmission Date: 20120825
  Serious: Yes (Death)
  Sender: FDA-Public Use
  Company Number: 2003JP006251

PATIENT
  Age: 52 Year
  Sex: Female

DRUGS (4)
  1. FUNGUARD (MICAFUNGIN) INJECTION [Suspect]
     Indication: ANTIFUNGAL PROPHYLAXIS
  2. CORTICOSTEROID NOS (CORTICOSTEROID NOS) [Concomitant]
  3. FLUMARIN /00963302/ (FLOMOXEF SODIUM) [Concomitant]
  4. PROGRAF [Suspect]
     Indication: IMMUNOSUPPRESSANT DRUG THERAPY

REACTIONS (2)
  - DRUG INEFFECTIVE [None]
  - BRONCHOPULMONARY ASPERGILLOSIS [None]
